FAERS Safety Report 4454132-2 (Version None)
Quarter: 2004Q3

REPORT INFORMATION
  Report Type: 
  Country: None (occurrence: None)
  Receive Date: 20040824
  Receipt Date: 20040706
  Transmission Date: 20050211
  Serious: No
  Sender: FDA-Public Use
  Company Number: SU-2004-002502

PATIENT
  Age: 60 Year
  Sex: Female
  Weight: 68.0396 kg

DRUGS (6)
  1. BENICAR [Suspect]
     Indication: CARDIOMYOPATHY
     Dosage: 40 MG QD PO
     Route: 048
     Dates: start: 20031106
  2. ZESTRIL [Concomitant]
  3. NEURONTIN [Concomitant]
  4. PROZAC [Concomitant]
  5. RESTORIL [Concomitant]
  6. ASPIRIN [Concomitant]

REACTIONS (1)
  - URINE ODOUR ABNORMAL [None]
